FAERS Safety Report 10050397 (Version 2)
Quarter: 2014Q2

REPORT INFORMATION
  Report Type: Spontaneous
  Country: HU (occurrence: HU)
  Receive Date: 20140401
  Receipt Date: 20140508
  Transmission Date: 20141212
  Serious: Yes (Hospitalization, Other)
  Sender: FDA-Public Use
  Company Number: HU-ELI_LILLY_AND_COMPANY-HU201403008106

PATIENT
  Age: 77 Year
  Sex: Female

DRUGS (6)
  1. FORSTEO [Suspect]
     Indication: OSTEOPOROSIS
     Dosage: 20 UG, QD
     Route: 058
     Dates: start: 20131213
  2. DIOVAN [Concomitant]
  3. XANAX [Concomitant]
  4. NEXIUM                             /01479302/ [Concomitant]
  5. METOTHYRIN [Concomitant]
  6. ASPIRIN PROTECT [Concomitant]

REACTIONS (3)
  - Transient ischaemic attack [Recovered/Resolved]
  - Vascular encephalopathy [Recovered/Resolved]
  - Cerebral infarction [Recovered/Resolved]
